FAERS Safety Report 6687914-7 (Version None)
Quarter: 2010Q2

REPORT INFORMATION
  Report Type: 
  Country: None (occurrence: None)
  Receive Date: 20100420
  Receipt Date: 20100409
  Transmission Date: 20101027
  Serious: Yes (Disabling)
  Sender: FDA-Public Use
  Company Number: JP-JNJFOC-20100403786

PATIENT
  Sex: Female

DRUGS (7)
  1. CRAVIT [Suspect]
     Indication: PHARYNGITIS
     Route: 065
  2. CRAVIT [Suspect]
     Indication: BRONCHITIS
     Route: 065
  3. MUCOTRON [Concomitant]
     Indication: BRONCHITIS
     Route: 065
  4. LOXOPROFEN SODIUM [Concomitant]
     Indication: SPINAL COLUMN STENOSIS
     Route: 065
  5. TRANSAMIN [Concomitant]
     Indication: BRONCHITIS
     Route: 065
  6. OPALMON [Concomitant]
     Indication: SPINAL COLUMN STENOSIS
     Route: 065
  7. METHYCOBAL [Concomitant]
     Indication: SPINAL COLUMN STENOSIS
     Route: 065

REACTIONS (4)
  - ARTHRITIS [None]
  - JOINT EFFUSION [None]
  - MYALGIA [None]
  - TENDONITIS [None]
